FAERS Safety Report 7965472-4 (Version None)
Quarter: 2011Q4

REPORT INFORMATION
  Report Type: 
  Country: None (occurrence: None)
  Receive Date: 20111208
  Receipt Date: 20111201
  Transmission Date: 20120403
  Serious: Yes (Other)
  Sender: FDA-Public Use
  Company Number: US-ABBOTT-11P-163-0880325-00

PATIENT
  Sex: Female
  Weight: 63.56 kg

DRUGS (3)
  1. IBUPROFEN [Concomitant]
     Indication: PAIN
  2. HUMIRA [Suspect]
     Indication: PSORIATIC ARTHROPATHY
     Dates: start: 20080101, end: 20110701
  3. TRAMADOL HCL [Concomitant]
     Indication: PAIN

REACTIONS (4)
  - TOOTH DISORDER [None]
  - OSTEOPOROSIS [None]
  - TOOTH LOSS [None]
  - ARTHRALGIA [None]
